FAERS Safety Report 6202841-7 (Version None)
Quarter: 2009Q2

REPORT INFORMATION
  Report Type: 
  Country: None (occurrence: None)
  Receive Date: 20090526
  Receipt Date: 20090515
  Transmission Date: 20091009
  Serious: Yes (Death, Hospitalization, Other)
  Sender: FDA-Public Use
  Company Number: US-BAXTER-2009BH000265

PATIENT
  Age: 80 Year
  Sex: Male

DRUGS (8)
  1. HEPARIN SODIUM INJECTION [Suspect]
     Indication: PROPHYLAXIS
     Route: 058
     Dates: start: 20071214, end: 20080225
  2. ADVAIR HFA [Concomitant]
     Indication: DRUG USE FOR UNKNOWN INDICATION
     Route: 048
  3. ALBUTEROL [Concomitant]
     Indication: DRUG USE FOR UNKNOWN INDICATION
     Route: 065
  4. COMBIVENT [Concomitant]
     Indication: DRUG USE FOR UNKNOWN INDICATION
     Route: 065
  5. WELLBUTRIN [Concomitant]
     Indication: DRUG USE FOR UNKNOWN INDICATION
     Route: 048
  6. DOXAZOSIN MESYLATE [Concomitant]
     Indication: DRUG USE FOR UNKNOWN INDICATION
     Route: 048
  7. FLOMAX [Concomitant]
     Indication: DRUG USE FOR UNKNOWN INDICATION
     Route: 048
  8. SINGULAIR [Concomitant]
     Indication: DRUG USE FOR UNKNOWN INDICATION
     Route: 048

REACTIONS (20)
  - ABDOMINAL DISTENSION [None]
  - ANAPHYLACTIC SHOCK [None]
  - ASPIRATION [None]
  - BACK PAIN [None]
  - CHOLECYSTITIS INFECTIVE [None]
  - CIRCULATORY COLLAPSE [None]
  - COAGULOPATHY [None]
  - DISORIENTATION [None]
  - HYPERHIDROSIS [None]
  - HYPOTENSION [None]
  - INFECTION [None]
  - MALNUTRITION [None]
  - MULTI-ORGAN FAILURE [None]
  - PAIN [None]
  - PHARYNGEAL OEDEMA [None]
  - PYREXIA [None]
  - RETROPERITONEAL HAEMORRHAGE [None]
  - SHOCK [None]
  - SKIN NECROSIS [None]
  - VOMITING [None]
